FAERS Safety Report 7764494-6 (Version None)
Quarter: 2011Q3

REPORT INFORMATION
  Report Type: 
  Country: None (occurrence: None)
  Receive Date: 20110921
  Receipt Date: 20110914
  Transmission Date: 20111222
  Serious: Yes (Hospitalization)
  Sender: FDA-Public Use
  Company Number: FR-MEDIMMUNE-MEDI-0013559

PATIENT
  Age: 63 Year
  Sex: Male

DRUGS (2)
  1. ETHYOL [Suspect]
     Indication: PROPHYLAXIS
     Route: 058
  2. RADIOTHERAPY [Suspect]

REACTIONS (2)
  - INJECTION SITE ERYTHEMA [None]
  - INJECTION SITE PRURITUS [None]
